FAERS Safety Report 7569649-1 (Version None)
Quarter: 2011Q2

REPORT INFORMATION
  Report Type: 
  Country: None (occurrence: None)
  Receive Date: 20110624
  Receipt Date: 20110620
  Transmission Date: 20111010
  Serious: No
  Sender: FDA-Public Use
  Company Number: US-PFIZER INC-2011136519

PATIENT
  Sex: Female

DRUGS (5)
  1. LYRICA [Suspect]
     Indication: NEURALGIA
     Dosage: 75 MG, DAILY
     Route: 048
     Dates: start: 20110610
  2. PAXIL [Suspect]
     Indication: ANXIETY
     Dosage: UNK
  3. TYLENOL-500 [Concomitant]
     Indication: PAIN
     Dosage: 2000 MG, UNK
  4. ATIVAN [Suspect]
     Indication: ANXIETY
     Dosage: UNK
  5. LYRICA [Suspect]
     Indication: SPINAL COLUMN STENOSIS
     Dosage: 75 MG, 2X/DAY
     Route: 048
     Dates: start: 20110609, end: 20110609

REACTIONS (5)
  - DYSPNOEA [None]
  - SOMNOLENCE [None]
  - ASTHENIA [None]
  - BACK PAIN [None]
  - ANXIETY [None]
